FAERS Safety Report 19177572 (Version 3)
Quarter: 2021Q4

REPORT INFORMATION
  Report Type: Spontaneous
  Country: JP (occurrence: JP)
  Receive Date: 20210425
  Receipt Date: 20211005
  Transmission Date: 20220303
  Serious: Yes (Death, Hospitalization)
  Sender: FDA-Public Use
  Company Number: NVSJ2021JP006390

PATIENT
  Age: 85 Year
  Sex: Male
  Weight: 52 kg

DRUGS (44)
  1. ENTRESTO [Suspect]
     Active Substance: SACUBITRIL\VALSARTAN
     Indication: Cardiac failure chronic
     Dosage: 50 MG, BID
     Route: 048
     Dates: start: 20200828, end: 20210309
  2. FEBUXOSTAT [Concomitant]
     Active Substance: FEBUXOSTAT
     Indication: Product used for unknown indication
     Dosage: 10 MG
     Route: 065
     Dates: start: 20200630
  3. FEBUXOSTAT [Concomitant]
     Active Substance: FEBUXOSTAT
     Dosage: 20 MG
     Route: 065
     Dates: start: 20200731
  4. FEBUXOSTAT [Concomitant]
     Active Substance: FEBUXOSTAT
     Dosage: 10 MG
     Route: 065
     Dates: start: 20201222
  5. FEBUXOSTAT [Concomitant]
     Active Substance: FEBUXOSTAT
     Dosage: 20 MG
     Route: 065
     Dates: start: 20210119
  6. SAMSCA [Concomitant]
     Active Substance: TOLVAPTAN
     Indication: Product used for unknown indication
     Dosage: 30 MG
     Route: 065
     Dates: start: 20200630
  7. SAMSCA [Concomitant]
     Active Substance: TOLVAPTAN
     Dosage: 37.5 MG
     Route: 065
     Dates: start: 20201110
  8. SAMSCA [Concomitant]
     Active Substance: TOLVAPTAN
     Dosage: 45 MG
     Route: 065
     Dates: start: 20210119
  9. INDAPAMIDE [Concomitant]
     Active Substance: INDAPAMIDE
     Indication: Product used for unknown indication
     Dosage: 1 MG
     Route: 065
     Dates: start: 20200630
  10. INDAPAMIDE [Concomitant]
     Active Substance: INDAPAMIDE
     Dosage: 0.5 MG
     Route: 065
     Dates: start: 20200925
  11. NEXIUM [Concomitant]
     Active Substance: ESOMEPRAZOLE MAGNESIUM
     Indication: Product used for unknown indication
     Dosage: 10 MG
     Route: 065
     Dates: start: 20200630
  12. ESAXERENONE [Concomitant]
     Active Substance: ESAXERENONE
     Indication: Product used for unknown indication
     Dosage: 1.25 MG
     Route: 065
     Dates: start: 20200630, end: 20210105
  13. AZOSEMIDE [Concomitant]
     Active Substance: AZOSEMIDE
     Indication: Product used for unknown indication
     Dosage: 60 MG
     Route: 065
     Dates: start: 20200630, end: 20210105
  14. DAPAGLIFLOZIN [Concomitant]
     Active Substance: DAPAGLIFLOZIN
     Indication: Product used for unknown indication
     Dosage: 5 MG
     Route: 065
     Dates: start: 20200630
  15. DAPAGLIFLOZIN [Concomitant]
     Active Substance: DAPAGLIFLOZIN
     Dosage: 10 MG
     Route: 065
     Dates: start: 20200717
  16. ELIQUIS [Concomitant]
     Active Substance: APIXABAN
     Indication: Product used for unknown indication
     Dosage: 5 MG
     Route: 065
     Dates: start: 20200630
  17. PIMOBENDAN [Concomitant]
     Active Substance: PIMOBENDAN
     Indication: Product used for unknown indication
     Dosage: 5 MG
     Route: 065
     Dates: start: 20200630
  18. DEXTROMETHORPHAN HYDROBROMIDE [Concomitant]
     Active Substance: DEXTROMETHORPHAN HYDROBROMIDE
     Indication: Product used for unknown indication
     Dosage: 45 MG
     Route: 065
     Dates: start: 20200630, end: 20200710
  19. DEXTROMETHORPHAN HYDROBROMIDE [Concomitant]
     Active Substance: DEXTROMETHORPHAN HYDROBROMIDE
     Dosage: 45 MG
     Route: 065
     Dates: start: 20200731
  20. DEXTROMETHORPHAN HYDROBROMIDE [Concomitant]
     Active Substance: DEXTROMETHORPHAN HYDROBROMIDE
     Dosage: 30 MG
     Route: 065
     Dates: start: 20201027
  21. SODIUM FERROUS CITRATE [Concomitant]
     Active Substance: SODIUM FERROUS CITRATE
     Indication: Product used for unknown indication
     Dosage: 50 MG
     Route: 065
     Dates: start: 20200630
  22. SODIUM FERROUS CITRATE [Concomitant]
     Active Substance: SODIUM FERROUS CITRATE
     Dosage: 100 MG
     Route: 065
     Dates: start: 20201020
  23. SODIUM FERROUS CITRATE [Concomitant]
     Active Substance: SODIUM FERROUS CITRATE
     Dosage: 150 MG
     Route: 065
     Dates: start: 20201027, end: 20201110
  24. FUROSEMIDE [Concomitant]
     Active Substance: FUROSEMIDE
     Indication: Product used for unknown indication
     Dosage: 60 MG
     Route: 065
     Dates: start: 20200710
  25. FUROSEMIDE [Concomitant]
     Active Substance: FUROSEMIDE
     Dosage: 80 MG
     Route: 065
     Dates: start: 20200717
  26. FUROSEMIDE [Concomitant]
     Active Substance: FUROSEMIDE
     Dosage: 100 MG
     Route: 065
     Dates: start: 20200731
  27. FUROSEMIDE [Concomitant]
     Active Substance: FUROSEMIDE
     Dosage: 80 MG
     Route: 065
     Dates: start: 20200925
  28. FUROSEMIDE [Concomitant]
     Active Substance: FUROSEMIDE
     Dosage: 60 MG
     Route: 065
     Dates: start: 20201027
  29. FUROSEMIDE [Concomitant]
     Active Substance: FUROSEMIDE
     Dosage: 80 MG
     Route: 065
     Dates: start: 20201124
  30. FUROSEMIDE [Concomitant]
     Active Substance: FUROSEMIDE
     Dosage: 120 MG
     Route: 065
     Dates: start: 20210128
  31. FUROSEMIDE [Concomitant]
     Active Substance: FUROSEMIDE
     Dosage: 160 MG
     Route: 065
     Dates: start: 20210212
  32. VADADUSTAT [Concomitant]
     Active Substance: VADADUSTAT
     Indication: Product used for unknown indication
     Dosage: 300 MG
     Route: 005
     Dates: start: 20200911
  33. VADADUSTAT [Concomitant]
     Active Substance: VADADUSTAT
     Dosage: 450 MG
     Route: 005
     Dates: start: 20201006
  34. VADADUSTAT [Concomitant]
     Active Substance: VADADUSTAT
     Dosage: 600 MG
     Route: 005
     Dates: start: 20201110
  35. VADADUSTAT [Concomitant]
     Active Substance: VADADUSTAT
     Dosage: 450 MG
     Route: 005
     Dates: start: 20210105, end: 20210217
  36. FERROUS SULFATE [Concomitant]
     Active Substance: FERROUS SULFATE
     Indication: Product used for unknown indication
     Dosage: 105 MG
     Route: 065
     Dates: start: 20201110
  37. FERROUS SULFATE [Concomitant]
     Active Substance: FERROUS SULFATE
     Dosage: 210 MG
     Route: 065
     Dates: start: 20201124
  38. ROXADUSTAT [Concomitant]
     Active Substance: ROXADUSTAT
     Indication: Product used for unknown indication
     Dosage: 50 MG
     Route: 065
     Dates: start: 20210217
  39. DOBUTREX [Concomitant]
     Active Substance: DOBUTAMINE HYDROCHLORIDE
     Indication: Product used for unknown indication
     Dosage: 2 ?G/KG
     Route: 065
     Dates: start: 20210217
  40. DOPAMINE [Concomitant]
     Active Substance: DOPAMINE HYDROCHLORIDE
     Indication: Product used for unknown indication
     Dosage: 2 ?G/KG
     Route: 065
     Dates: start: 20210301
  41. DOPAMINE [Concomitant]
     Active Substance: DOPAMINE HYDROCHLORIDE
     Dosage: 4.5 ?G/KG
     Route: 065
     Dates: start: 20210305
  42. DOPAMINE [Concomitant]
     Active Substance: DOPAMINE HYDROCHLORIDE
     Dosage: 6 ?G/KG
     Route: 065
     Dates: start: 20210319
  43. FUROSEMIDE [Concomitant]
     Active Substance: FUROSEMIDE
     Indication: Product used for unknown indication
     Dosage: 5 MG
     Route: 041
     Dates: start: 20210215
  44. FUROSEMIDE [Concomitant]
     Active Substance: FUROSEMIDE
     Dosage: 10 MG
     Route: 041
     Dates: start: 20210219

REACTIONS (4)
  - Cardiac failure [Fatal]
  - Weight increased [Fatal]
  - Urine output decreased [Unknown]
  - Hypotension [Unknown]

NARRATIVE: CASE EVENT DATE: 20210202
